FAERS Safety Report 7544868-9 (Version None)
Quarter: 2011Q2

REPORT INFORMATION
  Report Type: 
  Country: None (occurrence: None)
  Receive Date: 20110614
  Receipt Date: 20110513
  Transmission Date: 20111010
  Serious: Yes (Hospitalization, Other)
  Sender: FDA-Public Use
  Company Number: US-BAYER-2011-015960

PATIENT
  Age: -1 Year
  Sex: Female
  Weight: 99.773 kg

DRUGS (2)
  1. YASMIN [Suspect]
     Indication: ACNE
     Dosage: UNK
     Dates: start: 20040101, end: 20090101
  2. ALBUTEROL SULFATE AUTOHALER [Concomitant]
     Dosage: UNK
     Dates: start: 20020101

REACTIONS (3)
  - OEDEMA PERIPHERAL [None]
  - PULMONARY EMBOLISM [None]
  - DEEP VEIN THROMBOSIS [None]
